FAERS Safety Report 9185414 (Version 1)
Quarter: 2012Q4

REPORT INFORMATION
  Report Type: 
  Country: US (occurrence: US)
  Receive Date: 20121101
  Receipt Date: 20121101
  Transmission Date: 20130627
  Serious: Yes (Other)
  Sender: FDA-Public Use
  Company Number: US-PFIZER INC-2012269244

PATIENT
  Age: 46 Year
  Sex: Male
  Weight: 74.83 kg

DRUGS (3)
  1. LYRICA [Suspect]
     Indication: FIBROMYALGIA
     Dosage: 150 mg, 3x/day
     Route: 048
     Dates: start: 201205
  2. PREDNISONE [Concomitant]
     Indication: OSTEOARTHRITIS
     Dosage: 20 mg, daily
  3. PREDNISONE [Concomitant]
     Indication: INFLAMMATION LOCALIZED

REACTIONS (4)
  - Herpes zoster [Recovered/Resolved]
  - Feeling drunk [Unknown]
  - Somnolence [Unknown]
  - Asthenia [Unknown]
